FAERS Safety Report 4891381-3 (Version None)
Quarter: 2005Q4

REPORT INFORMATION
  Report Type: 
  Country: None (occurrence: None)
  Receive Date: 20051223
  Receipt Date: 20050826
  Transmission Date: 20060501
  Serious: No
  Sender: FDA-Public Use
  Company Number: 217265

PATIENT
  Age: 51 Year
  Sex: Male
  Weight: 135.1 kg

DRUGS (2)
  1. AVASTIN [Suspect]
     Indication: COLON CANCER METASTATIC
     Dosage: 643 UNIT, Q2W, INTRAVENOUS
     Route: 042
     Dates: start: 20050826
  2. CETUXIMAB (CETUXIMAB) [Concomitant]

REACTIONS (1)
  - PROTEINURIA [None]
